FAERS Safety Report 8376584-8 (Version None)
Quarter: 2012Q2

REPORT INFORMATION
  Report Type: 
  Country: None (occurrence: None)
  Receive Date: 20120522
  Receipt Date: 20120515
  Transmission Date: 20120825
  Serious: No
  Sender: FDA-Public Use
  Company Number: US-PFIZER INC-2012087874

PATIENT
  Sex: Female
  Weight: 70.748 kg

DRUGS (3)
  1. IBUPROFEN (ADVIL) [Suspect]
     Indication: NASOPHARYNGITIS
     Dosage: 200 MG, 6 TIMES A DAY
     Route: 048
     Dates: start: 20120403
  2. IBUPROFEN (ADVIL) [Suspect]
     Indication: PAIN
  3. ADVAIR DISKUS 100/50 [Concomitant]
     Indication: ASTHMA
     Dosage: UNK

REACTIONS (2)
  - DIZZINESS [None]
  - CHEST DISCOMFORT [None]
